FAERS Safety Report 8485817-9 (Version None)
Quarter: 2012Q3

REPORT INFORMATION
  Report Type: 
  Country: None (occurrence: None)
  Receive Date: 20120703
  Receipt Date: 20120621
  Transmission Date: 20120928
  Serious: Yes (Other)
  Sender: FDA-Public Use
  Company Number: PHHY2012GB053206

PATIENT
  Age: 66 Year
  Sex: Male

DRUGS (2)
  1. TAMSULOSIN HCL [Suspect]
     Indication: BENIGN PROSTATIC HYPERPLASIA
     Dosage: 400 UG, QD
     Route: 048
     Dates: start: 20111001
  2. TADALAFIL [Concomitant]

REACTIONS (2)
  - EMOTIONAL DISTRESS [None]
  - LIBIDO INCREASED [None]
